FAERS Safety Report 15820999 (Version 1)
Quarter: 2019Q1

REPORT INFORMATION
  Report Type: Spontaneous
  Country: TR (occurrence: TR)
  Receive Date: 20190114
  Receipt Date: 20190114
  Transmission Date: 20190417
  Serious: Yes (Other)
  Sender: FDA-Public Use
  Company Number: TR-GLAXOSMITHKLINE-TR2019GSK005165

PATIENT

DRUGS (2)
  1. AVAMYS [Suspect]
     Active Substance: FLUTICASONE FUROATE
     Indication: INFLUENZA
     Dosage: UNK
  2. A-FERIN (CHLORPHENAMINE MALEATE/CODEINE PHOSPHATE/PARACETAMOL) [Suspect]
     Active Substance: ACETAMINOPHEN\CHLORPHENIRAMINE\CODEINE
     Indication: INFLUENZA
     Dosage: UNK

REACTIONS (2)
  - Drug interaction [Unknown]
  - Arrhythmia [Unknown]
